FAERS Safety Report 7362525-9 (Version None)
Quarter: 2011Q1

REPORT INFORMATION
  Report Type: 
  Country: None (occurrence: None)
  Receive Date: 20110318
  Receipt Date: 20110309
  Transmission Date: 20110831
  Serious: Yes (Hospitalization)
  Sender: FDA-Public Use
  Company Number: US-ASTRAZENECA-2010SE48469

PATIENT
  Age: 880 Month
  Sex: Male

DRUGS (7)
  1. NEBULIZER [Concomitant]
  2. BLOOD PRESSURE MEDICATION [Concomitant]
  3. SPIRIVA [Concomitant]
     Dosage: UNKNOWN DOSE DAILY
  4. NASAL RINSE WITH AN ANTIBIOTIC [Concomitant]
  5. CHOLESTEROL MEDICATION [Concomitant]
  6. SYMBICORT [Suspect]
     Indication: CHRONIC OBSTRUCTIVE PULMONARY DISEASE
     Dosage: 160/4.5 MCG, 2 PUFFS, BID
     Route: 055
     Dates: start: 20080101
  7. VENTOLIN [Concomitant]
     Dosage: UNKNOWN DOSE TWO TIMES A DAY

REACTIONS (3)
  - VASCULAR GRAFT [None]
  - ARTERIAL REPAIR [None]
  - DRUG DOSE OMISSION [None]
